FAERS Safety Report 12732569 (Version 1)
Quarter: 2016Q3

REPORT INFORMATION
  Report Type: Spontaneous
  Country: IN (occurrence: IN)
  Receive Date: 20160912
  Receipt Date: 20160912
  Transmission Date: 20161109
  Serious: Yes (Other)
  Sender: FDA-Public Use
  Company Number: IN-CMP PHARMA-2016CMP00012

PATIENT
  Age: 65 Year
  Sex: Male

DRUGS (3)
  1. HYPOGLYCEMIC AGENTS [Concomitant]
     Route: 048
  2. TRIAMCINOLONE [Suspect]
     Active Substance: TRIAMCINOLONE
     Indication: DIABETIC RETINAL OEDEMA
     Dosage: 20 MG/0.5 ML, OD,UNK
     Route: 031
  3. MOXIFLOXACIN. [Concomitant]
     Active Substance: MOXIFLOXACIN
     Dosage: OD, UNK
     Route: 047

REACTIONS (4)
  - Eye abscess [Recovered/Resolved]
  - Infective scleritis [None]
  - Staphylococcal abscess [None]
  - Diabetes mellitus inadequate control [None]
